FAERS Safety Report 12864544 (Version 2)
Quarter: 2016Q4

REPORT INFORMATION
  Report Type: Report from Study
  Country: AU (occurrence: AU)
  Receive Date: 20161020
  Receipt Date: 20161101
  Transmission Date: 20170207
  Serious: Yes (Death)
  Sender: FDA-Public Use
  Company Number: AU-ACTELION-A-CH2016-143832

PATIENT
  Age: 76 Year
  Sex: Female

DRUGS (3)
  1. SILDENAFIL. [Suspect]
     Active Substance: SILDENAFIL
     Indication: SCLERODERMA
     Dosage: 100 MG, TID
     Route: 048
     Dates: start: 201109, end: 201609
  2. TRACLEER [Suspect]
     Active Substance: BOSENTAN
     Indication: SCLERODERMA
     Dosage: 125 MG, BID
     Route: 048
     Dates: start: 20080501, end: 201609
  3. ILOPROST [Suspect]
     Active Substance: ILOPROST
     Indication: SCLERODERMA
     Dosage: 5 ?G, 9 TIMES/DAY
     Route: 055
     Dates: start: 201107, end: 201609

REACTIONS (4)
  - Circulatory collapse [Fatal]
  - Pulmonary hypertension [Fatal]
  - Disease progression [Fatal]
  - Respiratory arrest [Fatal]

NARRATIVE: CASE EVENT DATE: 201609
